FAERS Safety Report 22062290 (Version 1)
Quarter: 2023Q1

REPORT INFORMATION
  Report Type: Spontaneous
  Country: CN (occurrence: None)
  Receive Date: 20230305
  Receipt Date: 20230305
  Transmission Date: 20230418
  Serious: Yes (Hospitalization)
  Sender: FDA-Public Use
  Company Number: CN-ROCHE-3298276

PATIENT
  Age: 47 Year
  Sex: Female
  Weight: 55 kg

DRUGS (7)
  1. PERJETA [Suspect]
     Active Substance: PERTUZUMAB
     Indication: Breast neoplasm
     Route: 041
     Dates: start: 20230215, end: 20230215
  2. HERCEPTIN [Suspect]
     Active Substance: TRASTUZUMAB
     Indication: Breast neoplasm
     Route: 041
     Dates: start: 20230215, end: 20230215
  3. DOCETAXEL [Suspect]
     Active Substance: DOCETAXEL
     Indication: Breast neoplasm
     Route: 041
     Dates: start: 20230215, end: 20230215
  4. SODIUM CHLORIDE [Concomitant]
     Active Substance: SODIUM CHLORIDE
     Route: 041
     Dates: start: 20230215, end: 20230215
  5. SODIUM CHLORIDE [Concomitant]
     Active Substance: SODIUM CHLORIDE
     Route: 041
     Dates: start: 20230215, end: 20230215
  6. LEUCOGEN [Concomitant]
     Active Substance: LEUCOGEN
     Indication: White blood cell count increased
     Route: 048
     Dates: start: 20230217
  7. UBENIMEX [Concomitant]
     Active Substance: UBENIMEX
     Indication: White blood cell count increased
     Route: 048
     Dates: start: 20230217

REACTIONS (1)
  - Myelosuppression [Recovering/Resolving]

NARRATIVE: CASE EVENT DATE: 20230221
